FAERS Safety Report 6460135-9 (Version None)
Quarter: 2009Q4

REPORT INFORMATION
  Report Type: 
  Country: None (occurrence: None)
  Receive Date: 20091129
  Receipt Date: 20091124
  Transmission Date: 20100525
  Serious: Yes (Death)
  Sender: FDA-Public Use
  Company Number: PHHY2008JP19508

PATIENT
  Sex: Female

DRUGS (9)
  1. ICL670A ICL+DISTAB [Suspect]
     Indication: IRON OVERLOAD
     Dosage: 1000 MG, QD
     Route: 048
     Dates: start: 20080707, end: 20080717
  2. ICL670A ICL+DISTAB [Suspect]
     Indication: APLASTIC ANAEMIA
     Dosage: 250 MG, QD
     Dates: end: 20080911
  3. ICL670A ICL+DISTAB [Suspect]
     Dosage: 125 MG, QD
     Route: 048
     Dates: start: 20090107, end: 20090115
  4. CYCLOSPORINE [Suspect]
     Dosage: UNK
     Route: 048
     Dates: start: 20090108, end: 20090309
  5. THYRADIN S [Concomitant]
     Dosage: 25 UG, UNK
     Route: 048
     Dates: start: 20090108, end: 20090308
  6. RED BLOOD CELLS, LEUCOCYTE DEPLETED [Concomitant]
     Dosage: 2 U, BIW
     Dates: start: 20071005, end: 20080904
  7. RED BLOOD CELLS, LEUCOCYTE DEPLETED [Concomitant]
     Dosage: 2 U, BIW
     Dates: start: 20080905, end: 20090106
  8. RED BLOOD CELLS, LEUCOCYTE DEPLETED [Concomitant]
     Dosage: 2 U, BIW
     Dates: start: 20090108, end: 20090309
  9. PLATELETS [Concomitant]
     Dosage: 10 U, QW
     Dates: start: 20070905, end: 20080903

REACTIONS (10)
  - ASPARTATE AMINOTRANSFERASE INCREASED [None]
  - BLOOD ALKALINE PHOSPHATASE INCREASED [None]
  - BLOOD BILIRUBIN INCREASED [None]
  - BLOOD CREATININE INCREASED [None]
  - BLOOD LACTATE DEHYDROGENASE INCREASED [None]
  - BLOOD UREA INCREASED [None]
  - CAPILLARY LEAK SYNDROME [None]
  - GAMMA-GLUTAMYLTRANSFERASE INCREASED [None]
  - LIVER DISORDER [None]
  - RENAL DISORDER [None]
